FAERS Safety Report 5367829-7 (Version None)
Quarter: 2007Q2

REPORT INFORMATION
  Report Type: 
  Country: None (occurrence: None)
  Receive Date: 20070622
  Receipt Date: 20070611
  Transmission Date: 20071010
  Serious: Yes (Other)
  Sender: FDA-Public Use
  Company Number: NL-PFIZER INC-2007045394

PATIENT
  Sex: Male
  Weight: 74 kg

DRUGS (5)
  1. LYRICA [Suspect]
     Indication: POLYNEUROPATHY
     Route: 048
     Dates: start: 20061016, end: 20070516
  2. GLIMEPIRIDE [Concomitant]
     Route: 048
     Dates: start: 20040401, end: 20070607
  3. METFORMIN HCL [Concomitant]
     Route: 048
     Dates: start: 20040401, end: 20070607
  4. SIMVASTATIN [Concomitant]
     Route: 048
     Dates: start: 20040101, end: 20070607
  5. NITROGLYCERIN [Concomitant]
     Route: 062
     Dates: start: 20040101, end: 20070607

REACTIONS (2)
  - CHRONIC OBSTRUCTIVE PULMONARY DISEASE [None]
  - NARCOLEPSY [None]
